FAERS Safety Report 4986615-0 (Version None)
Quarter: 2006Q2

REPORT INFORMATION
  Report Type: 
  Country: None (occurrence: None)
  Receive Date: 20060428
  Receipt Date: 20060420
  Transmission Date: 20061013
  Serious: Yes (Hospitalization)
  Sender: FDA-Public Use
  Company Number: JP-BRISTOL-MYERS SQUIBB COMPANY-13358320

PATIENT
  Age: 17 Year

DRUGS (9)
  1. ENDOXAN [Suspect]
     Indication: SYSTEMIC LUPUS ERYTHEMATOSUS
     Dates: start: 20030101
  2. PREDONINE [Suspect]
     Indication: SYSTEMIC LUPUS ERYTHEMATOSUS
  3. AZATHIOPRINE [Suspect]
     Indication: SYSTEMIC LUPUS ERYTHEMATOSUS
  4. METHYLPREDNISOLONE 4MG TAB [Suspect]
     Indication: NERVOUS SYSTEM DISORDER
     Dates: start: 20030601
  5. SULFAMETHOXAZOLE + TRIMETHOPRIM [Concomitant]
  6. IMMUNE GLOBULIN INTRAVENOUS (HUMAN) [Concomitant]
  7. GANCICLOVIR [Concomitant]
  8. MYCOPHENOLATE MOFETIL [Concomitant]
  9. INSULIN [Concomitant]

REACTIONS (6)
  - CYTOMEGALOVIRUS CHORIORETINITIS [None]
  - DIABETES MELLITUS INSULIN-DEPENDENT [None]
  - HERPES ZOSTER [None]
  - LUPUS NEPHRITIS [None]
  - PHOTOPHOBIA [None]
  - PNEUMOCYSTIS JIROVECI PNEUMONIA [None]
